FAERS Safety Report 19884171 (Version 1)
Quarter: 2021Q3

REPORT INFORMATION
  Report Type: Spontaneous
  Country: US (occurrence: US)
  Receive Date: 20210924
  Receipt Date: 20210924
  Transmission Date: 20211014
  Serious: Yes (Hospitalization)
  Sender: FDA-Public Use
  Company Number: None

PATIENT
  Age: 33 Year
  Sex: Female

DRUGS (2)
  1. SANDOSTATIN [Suspect]
     Active Substance: OCTREOTIDE ACETATE
     Indication: GIGANTISM
     Dosage: 40MG ONCE MONTHLY INTRAMUSCULAR
     Route: 030
     Dates: start: 20201003
  2. SANDOSTATIN [Suspect]
     Active Substance: OCTREOTIDE ACETATE
     Indication: ACROMEGALY
     Dosage: 40MG ONCE MONTHLY INTRAMUSCULAR
     Route: 030
     Dates: start: 20201003

REACTIONS (1)
  - Cardiac disorder [None]

NARRATIVE: CASE EVENT DATE: 20210923
